FAERS Safety Report 24094200 (Version 2)
Quarter: 2024Q3

REPORT INFORMATION
  Report Type: Spontaneous
  Country: JP (occurrence: JP)
  Receive Date: 20240716
  Receipt Date: 20240725
  Transmission Date: 20241016
  Serious: No
  Sender: AMGEN
  Company Number: JP-KYOWAKIRIN-2024KK016160

PATIENT
  Age: 9 Decade
  Sex: Female

DRUGS (1)
  1. DARBEPOETIN ALFA [Suspect]
     Active Substance: DARBEPOETIN ALFA
     Indication: Product used for unknown indication
     Dosage: UNK
     Route: 065

REACTIONS (1)
  - No adverse event [Unknown]
